FAERS Safety Report 8758626 (Version 4)
Quarter: 2013Q4

REPORT INFORMATION
  Report Type: Spontaneous
  Country: US (occurrence: US)
  Receive Date: 20120829
  Receipt Date: 20131108
  Transmission Date: 20140711
  Serious: Yes (Hospitalization, Other)
  Sender: FDA-Public Use
  Company Number: US-009507513-2010SP062524

PATIENT
  Age: 18 Year
  Sex: Female
  Weight: 54.43 kg

DRUGS (1)
  1. NUVARING [Suspect]
     Indication: CONTRACEPTION
     Dosage: UNK UNK, QM
     Dates: start: 20090728, end: 20100715

REACTIONS (8)
  - Hypercoagulation [Unknown]
  - Coagulopathy [Unknown]
  - Synovial cyst [Unknown]
  - Deep vein thrombosis [Unknown]
  - Pulmonary infarction [Recovered/Resolved]
  - Pulmonary embolism [Recovered/Resolved]
  - Wrist surgery [Unknown]
  - Tendon sheath lesion excision [Unknown]
